FAERS Safety Report 22329700 (Version 1)
Quarter: 2023Q2

REPORT INFORMATION
  Report Type: Other
  Country: US (occurrence: None)
  Receive Date: 20230517
  Receipt Date: 20230517
  Transmission Date: 20230722
  Serious: No
  Sender: FDA-Public Use
  Company Number: US-ROCHE-3266341

PATIENT
  Age: 80 Year
  Sex: Male

DRUGS (5)
  1. TOCILIZUMAB [Suspect]
     Active Substance: TOCILIZUMAB
     Indication: COVID-19
     Route: 065
  2. REMDESIVIR [Concomitant]
     Active Substance: REMDESIVIR
  3. DEXAMETHASONE [Concomitant]
     Active Substance: DEXAMETHASONE
  4. TOZINAMERAN [Concomitant]
     Active Substance: TOZINAMERAN
     Dates: start: 20210420
  5. TOZINAMERAN [Concomitant]
     Active Substance: TOZINAMERAN
     Dates: start: 20210510

REACTIONS (2)
  - Off label use [Unknown]
  - No adverse event [Unknown]
